FAERS Safety Report 9217989 (Version 2)
Quarter: 2013Q2

REPORT INFORMATION
  Report Type: Spontaneous
  Country: US (occurrence: US)
  Receive Date: 20130408
  Receipt Date: 20130530
  Transmission Date: 20140414
  Serious: Yes (Other)
  Sender: FDA-Public Use
  Company Number: PHEH2013US007847

PATIENT
  Age: 66 Year
  Sex: Female

DRUGS (2)
  1. VIVELLE DOT [Suspect]
     Dosage: 2 DF, QW2 (TWO PATCHES TWICE WEEKLY)
     Route: 062
  2. VITAMIN B12 [Concomitant]
     Dosage: UNK UKN, UNK

REACTIONS (3)
  - Oedema peripheral [Recovering/Resolving]
  - Thrombosis [Unknown]
  - Application site erythema [Unknown]
